FAERS Safety Report 4942669-9 (Version None)
Quarter: 2006Q1

REPORT INFORMATION
  Report Type: 
  Country: None (occurrence: None)
  Receive Date: 20060309
  Receipt Date: 20060223
  Transmission Date: 20060701
  Serious: Yes (Hospitalization)
  Sender: FDA-Public Use
  Company Number: PAR_0533_2006

PATIENT
  Age: 56 Year
  Sex: Male

DRUGS (1)
  1. INDOMETHACIN [Suspect]
     Indication: ARTHRITIS
     Dosage: 150 MG QDAY PO
     Route: 048

REACTIONS (13)
  - AREFLEXIA [None]
  - BLOOD GLUCOSE INCREASED [None]
  - BOWEL SOUNDS ABNORMAL [None]
  - CHOLELITHIASIS [None]
  - COMA [None]
  - CONVULSION [None]
  - GASTROINTESTINAL OEDEMA [None]
  - HYPOTENSION [None]
  - HYPOXIA [None]
  - METABOLIC ACIDOSIS [None]
  - PANCREATITIS [None]
  - PERIPANCREATIC FLUID COLLECTION [None]
  - PLEURAL EFFUSION [None]
